FAERS Safety Report 5040344-6 (Version None)
Quarter: 2006Q2

REPORT INFORMATION
  Report Type: 
  Country: None (occurrence: None)
  Receive Date: 20060601
  Receipt Date: 20060116
  Transmission Date: 20061013
  Serious: No
  Sender: FDA-Public Use
  Company Number: 2005PV000730

PATIENT
  Age: 68 Year
  Sex: Female
  Weight: 95.2554 kg

DRUGS (13)
  1. BYETTA [Suspect]
     Indication: DIABETES MELLITUS NON-INSULIN-DEPENDENT
     Dosage: SEE IMAGE
     Route: 058
     Dates: start: 20050701, end: 20060101
  2. BYETTA [Suspect]
     Indication: DIABETES MELLITUS NON-INSULIN-DEPENDENT
     Dosage: SEE IMAGE
     Route: 058
     Dates: start: 20050601, end: 20060701
  3. LANTUS [Concomitant]
  4. BENICAR [Concomitant]
  5. COREG [Concomitant]
  6. ASPIRIN [Concomitant]
  7. LANTUS [Concomitant]
  8. HUMALOG [Concomitant]
  9. HUMALOG [Concomitant]
  10. HUMALOG [Concomitant]
  11. HUMALOG [Concomitant]
  12. HUMALOG [Concomitant]
  13. HUMALOG [Concomitant]

REACTIONS (10)
  - BLOOD GLUCOSE DECREASED [None]
  - BLOOD GLUCOSE INCREASED [None]
  - DECREASED APPETITE [None]
  - DIZZINESS [None]
  - NAUSEA [None]
  - OEDEMA PERIPHERAL [None]
  - PAIN IN EXTREMITY [None]
  - THERAPEUTIC RESPONSE UNEXPECTED [None]
  - VOMITING [None]
  - WEIGHT DECREASED [None]
